FAERS Safety Report 4307252-7 (Version None)
Quarter: 2004Q1

REPORT INFORMATION
  Report Type: 
  Country: None (occurrence: None)
  Receive Date: 20040226
  Receipt Date: 20040220
  Transmission Date: 20041129
  Serious: Yes (Hospitalization, Other)
  Sender: FDA-Public Use
  Company Number: USA-2003-0012821

PATIENT
  Age: 54 Year
  Sex: Male

DRUGS (2)
  1. OXYCONTIN [Suspect]
     Dosage: INTRAMUSCULAR
     Route: 030
  2. MS CONTIN [Suspect]
     Dosage: INTRAMUSCULAR
     Route: 030

REACTIONS (3)
  - DRUG ABUSER [None]
  - MEDICATION ERROR [None]
  - SUBCUTANEOUS ABSCESS [None]
